FAERS Safety Report 7481485-3 (Version None)
Quarter: 2011Q2

REPORT INFORMATION
  Report Type: 
  Country: None (occurrence: None)
  Receive Date: 20110516
  Receipt Date: 20110510
  Transmission Date: 20111010
  Serious: Yes (Death)
  Sender: FDA-Public Use
  Company Number: MX-SANOFI-AVENTIS-2011SA029068

PATIENT
  Age: 62 Year
  Sex: Male

DRUGS (6)
  1. METOPROLOL SUCCINATE [Concomitant]
     Dates: end: 20110426
  2. BI-EUGLUCON [Concomitant]
     Indication: TYPE 2 DIABETES MELLITUS
     Route: 048
     Dates: start: 20000101, end: 20110423
  3. LANTUS [Suspect]
     Dosage: 26 IU/ DAY (10 IU IN THE MORNING AND 16 IU AT NIGHT)
     Route: 058
     Dates: start: 20110301, end: 20110423
  4. SINTROM [Concomitant]
     Route: 048
     Dates: start: 19910101, end: 20110426
  5. LANTUS [Suspect]
     Indication: TYPE 2 DIABETES MELLITUS
     Route: 058
     Dates: start: 20050101, end: 20110301
  6. ENALAPRIL [Concomitant]
     Route: 048
     Dates: end: 20110426

REACTIONS (2)
  - HYPERGLYCAEMIA [None]
  - CEREBROVASCULAR ACCIDENT [None]
